FAERS Safety Report 6432758-4 (Version None)
Quarter: 2009Q4

REPORT INFORMATION
  Report Type: 
  Country: None (occurrence: None)
  Receive Date: 20091109
  Receipt Date: 20091102
  Transmission Date: 20100525
  Serious: Yes (Disabling, Other)
  Sender: FDA-Public Use
  Company Number: A0654391A

PATIENT
  Age: 76 Year
  Sex: Male

DRUGS (10)
  1. AVANDIA [Suspect]
     Dosage: 1TAB TWICE PER DAY
     Route: 048
     Dates: start: 20041015, end: 20060801
  2. CENTRUM [Concomitant]
  3. ASPIRIN [Concomitant]
  4. LOPRESSOR [Concomitant]
  5. DIOVAN [Concomitant]
  6. LASIX [Concomitant]
  7. PEPCID [Concomitant]
  8. ZETIA [Concomitant]
  9. SIMVASTATIN [Concomitant]
  10. METFORMIN HCL [Concomitant]

REACTIONS (12)
  - APPARENT DEATH [None]
  - CARDIAC FAILURE CONGESTIVE [None]
  - CHEST DISCOMFORT [None]
  - CORONARY ARTERY DISEASE [None]
  - DYSPNOEA [None]
  - DYSPNOEA EXERTIONAL [None]
  - MALAISE [None]
  - MYOCARDIAL INFARCTION [None]
  - OEDEMA [None]
  - ORTHOPNOEA [None]
  - PNEUMONIA [None]
  - WEIGHT INCREASED [None]
